FAERS Safety Report 4559250-6 (Version None)
Quarter: 2005Q1

REPORT INFORMATION
  Report Type: 
  Country: None (occurrence: None)
  Receive Date: 20050124
  Receipt Date: 20041110
  Transmission Date: 20050727
  Serious: Yes (Death, Hospitalization, Other)
  Sender: FDA-Public Use
  Company Number: US-MERCK-0411USA02061

PATIENT
  Age: 60 Year
  Sex: Female

DRUGS (2)
  1. VIOXX [Suspect]
     Indication: ARTHROPATHY
     Route: 048
  2. VIOXX [Suspect]
     Indication: ARTHRALGIA
     Route: 048

REACTIONS (7)
  - ARTHROPATHY [None]
  - DEATH [None]
  - GENERAL PHYSICAL HEALTH DETERIORATION [None]
  - GENERAL SYMPTOM [None]
  - KNEE ARTHROPLASTY [None]
  - SEPSIS [None]
  - THROMBOSIS [None]
